FAERS Safety Report 5322829-8 (Version None)
Quarter: 2007Q2

REPORT INFORMATION
  Report Type: 
  Country: None (occurrence: None)
  Receive Date: 20070511
  Receipt Date: 20070430
  Transmission Date: 20071010
  Serious: Yes (Hospitalization)
  Sender: FDA-Public Use
  Company Number: US-PFIZER INC-2007035111

PATIENT
  Sex: Female

DRUGS (2)
  1. DILANTIN [Suspect]
  2. CLOZAPINE [Suspect]
     Dates: start: 19980101, end: 20070101

REACTIONS (1)
  - THERAPEUTIC AGENT TOXICITY [None]
